FAERS Safety Report 4511062-5 (Version None)
Quarter: 2004Q4

REPORT INFORMATION
  Report Type: 
  Country: None (occurrence: None)
  Receive Date: 20041018
  Receipt Date: 20040901
  Transmission Date: 20050328
  Serious: No
  Sender: FDA-Public Use
  Company Number: 208578

PATIENT
  Age: 75 Year
  Sex: Female
  Weight: 72.1 kg

DRUGS (10)
  1. XOLAIR [Suspect]
     Indication: ASTHMA
     Dosage: 150 MG, Q4W, SUBCUTANEOUS
     Route: 058
     Dates: start: 20031117, end: 20040819
  2. ALUPENT NEBULIZER (METAPROTERENOL SULFATE) [Concomitant]
  3. ADVAIR (SALMETEROL XINAFOATE, FLUTICASONE PROPIONATE) [Concomitant]
  4. NITROGLYCERIN [Concomitant]
  5. SPIRIVA (TIOTROPIUM BROMIDE) TABLET [Concomitant]
  6. XANAX [Concomitant]
  7. INTAL [Concomitant]
  8. FLONASE [Concomitant]
  9. NITROPASTE (NITROGLYCERIN) [Concomitant]
  10. ASTELIN [Concomitant]

REACTIONS (1)
  - BLOOD PRESSURE FLUCTUATION [None]
